FAERS Safety Report 19693589 (Version 4)
Quarter: 2021Q3

REPORT INFORMATION
  Report Type: Spontaneous
  Country: US (occurrence: US)
  Receive Date: 20210812
  Receipt Date: 20210903
  Transmission Date: 20211014
  Serious: No
  Sender: FDA-Public Use
  Company Number: US-SA-2021SA265416

PATIENT
  Age: 75 Year
  Sex: Female

DRUGS (1)
  1. MULTAQ [Suspect]
     Active Substance: DRONEDARONE
     Dosage: 400 MG, BID FOR 6 WEEKS
     Route: 065

REACTIONS (2)
  - Taste disorder [Unknown]
  - Abdominal discomfort [Unknown]
